FAERS Safety Report 6221244-2 (Version None)
Quarter: 2009Q2

REPORT INFORMATION
  Report Type: 
  Country: None (occurrence: None)
  Receive Date: 20090610
  Receipt Date: 20090602
  Transmission Date: 20091009
  Serious: Yes (Hospitalization)
  Sender: FDA-Public Use
  Company Number: JP-MERCK-0906USA00770

PATIENT
  Age: 50 Year
  Sex: Male

DRUGS (2)
  1. PRIMAXIN [Suspect]
     Indication: SPONDYLITIS
     Route: 042
     Dates: start: 20090530, end: 20090602
  2. ROCEPHIN [Concomitant]
     Indication: SPONDYLITIS
     Route: 042
     Dates: start: 20090501, end: 20090530

REACTIONS (2)
  - LIVER FUNCTION TEST ABNORMAL [None]
  - PYREXIA [None]
